FAERS Safety Report 6154225-8 (Version None)
Quarter: 2009Q2

REPORT INFORMATION
  Report Type: 
  Country: None (occurrence: None)
  Receive Date: 20090414
  Receipt Date: 20090408
  Transmission Date: 20091009
  Serious: Yes (Hospitalization)
  Sender: FDA-Public Use
  Company Number: JP-EISAI MEDICAL RESEARCH-E2090-00654-SPO-JP

PATIENT
  Sex: Male
  Weight: 54.85 kg

DRUGS (5)
  1. EXCEGRAN [Suspect]
     Indication: EPILEPSY
     Route: 048
     Dates: end: 20090102
  2. EXCEGRAN [Suspect]
     Route: 048
     Dates: start: 20090103, end: 20090108
  3. PHENOBARBITAL TAB [Concomitant]
     Indication: EPILEPSY
     Route: 048
     Dates: start: 20090103
  4. DEPAKENE [Concomitant]
     Dates: start: 20020101
  5. DEPAKENE [Concomitant]
     Dates: start: 20051015

REACTIONS (2)
  - INTERSTITIAL LUNG DISEASE [None]
  - LIVER DISORDER [None]
